FAERS Safety Report 17854761 (Version 2)
Quarter: 2020Q2

REPORT INFORMATION
  Report Type: Spontaneous
  Country: US (occurrence: US)
  Receive Date: 20200603
  Receipt Date: 20200605
  Transmission Date: 20200714
  Serious: Yes (Other)
  Sender: FDA-Public Use
  Company Number: US-PFIZER INC-2020217224

PATIENT
  Age: 49 Year
  Sex: Female

DRUGS (2)
  1. MECLIZINE [Concomitant]
     Active Substance: MECLIZINE HYDROCHLORIDE
     Dosage: UNK
  2. LYRICA [Suspect]
     Active Substance: PREGABALIN
     Dosage: 50 MG, 3X/DAY {TAKING LYRICA 50 MG TID (THREE TIMES A DAY)}

REACTIONS (2)
  - Vertigo [Unknown]
  - Multiple sclerosis [Unknown]
